FAERS Safety Report 8746486 (Version 3)
Quarter: 2014Q1

REPORT INFORMATION
  Report Type: Spontaneous
  Country: CH (occurrence: CH)
  Receive Date: 20120827
  Receipt Date: 20140305
  Transmission Date: 20141002
  Serious: Yes (Life-Threatening, Hospitalization, Other)
  Sender: FDA-Public Use
  Company Number: CH-JNJFOC-20120810712

PATIENT
  Age: 31 Year
  Sex: Male
  Weight: 93 kg

DRUGS (4)
  1. REMICADE [Suspect]
     Indication: CROHN^S DISEASE
     Dosage: STOP DATE: JUN OR JUL-2012
     Route: 042
     Dates: start: 200909, end: 2012
  2. CIPROFLOXACIN [Concomitant]
     Indication: ABSCESS
     Route: 065
     Dates: start: 200909, end: 200910
  3. CIPROFLOXACIN [Concomitant]
     Indication: INFECTION
     Route: 065
     Dates: start: 200909, end: 200910
  4. METRONIDAZOL [Concomitant]
     Route: 065
     Dates: start: 200909, end: 200910

REACTIONS (8)
  - Thymoma malignant [Not Recovered/Not Resolved]
  - Metastases to pleura [Not Recovered/Not Resolved]
  - Splenomegaly [Unknown]
  - Inflammation [Unknown]
  - Respiratory failure [Unknown]
  - Hepatitis cholestatic [Unknown]
  - Tularaemia [Recovered/Resolved]
  - Sepsis [Recovered/Resolved]
